FAERS Safety Report 10514992 (Version 5)
Quarter: 2015Q1

REPORT INFORMATION
  Report Type: Spontaneous
  Country: JP (occurrence: JP)
  Receive Date: 20141013
  Receipt Date: 20150202
  Transmission Date: 20150720
  Serious: Yes (Other)
  Sender: FDA-Public Use
  Company Number: PHHY2014JP132382

PATIENT
  Age: 70 Year
  Sex: Female
  Weight: 56 kg

DRUGS (7)
  1. ZOMETA [Suspect]
     Active Substance: ZOLEDRONIC ACID
     Indication: METASTASES TO BONE
     Dosage: 4 MG/5 ML
     Route: 041
     Dates: start: 20111122, end: 20130509
  2. AROMASIN [Concomitant]
     Active Substance: EXEMESTANE
     Indication: PRODUCT USED FOR UNKNOWN INDICATION
     Dosage: 25 MG, QD
     Route: 048
     Dates: start: 20110309, end: 20130411
  3. XELODA [Concomitant]
     Active Substance: CAPECITABINE
     Indication: PAIN MANAGEMENT
     Dosage: 1200 MG, BID
     Route: 048
     Dates: start: 200912
  4. PACLITAXEL. [Suspect]
     Active Substance: PACLITAXEL
     Indication: METASTASES TO BONE
     Dosage: 100 MG, QD
     Route: 042
  5. FEMARA [Concomitant]
     Active Substance: LETROZOLE
     Indication: PRODUCT USED FOR UNKNOWN INDICATION
     Dosage: 2.5 MG, QD
     Route: 048
     Dates: start: 20130411, end: 20130509
  6. AVASTIN [Suspect]
     Active Substance: BEVACIZUMAB
     Indication: METASTASES TO BONE
     Dosage: 400 MG, QD
     Route: 042
  7. FASLODEX [Concomitant]
     Active Substance: FULVESTRANT
     Indication: PRODUCT USED FOR UNKNOWN INDICATION
     Dosage: 500 MG, QD
     Route: 030
     Dates: start: 20130509, end: 20130718

REACTIONS (11)
  - Swelling [Recovering/Resolving]
  - Neuralgia [Recovering/Resolving]
  - Osteolysis [Unknown]
  - Tenderness [Recovering/Resolving]
  - Dental fistula [Unknown]
  - Osteonecrosis of jaw [Not Recovered/Not Resolved]
  - Exposed bone in jaw [Unknown]
  - Hypoaesthesia [Unknown]
  - Dental discomfort [Recovering/Resolving]
  - Tooth fracture [Recovering/Resolving]
  - Gingivitis [Unknown]

NARRATIVE: CASE EVENT DATE: 20120907
